FAERS Safety Report 6353464-0 (Version None)
Quarter: 2009Q3

REPORT INFORMATION
  Report Type: 
  Country: None (occurrence: None)
  Receive Date: 20090912
  Receipt Date: 20090622
  Transmission Date: 20100115
  Serious: No
  Sender: FDA-Public Use
  Company Number: US-ABBOTT-08P-163-0472919-00

PATIENT
  Sex: Female
  Weight: 59.02 kg

DRUGS (26)
  1. HUMIRA [Suspect]
     Indication: CROHN'S DISEASE
     Dosage: STARTER DOSE
     Route: 058
     Dates: start: 20080726, end: 20080726
  2. HUMIRA [Suspect]
     Indication: RHEUMATOID ARTHRITIS
     Dosage: X1
     Route: 058
  3. HUMIRA [Suspect]
     Route: 058
  4. METHOTREXATE [Concomitant]
     Indication: RHEUMATOID ARTHRITIS
     Route: 050
  5. VITAMIN B-12 [Concomitant]
     Indication: PERNICIOUS ANAEMIA
     Route: 050
  6. GURAGESIC PATCH [Concomitant]
     Indication: PAIN
     Route: 061
  7. MORPHINE SULFATE [Concomitant]
     Indication: PAIN
     Route: 048
  8. DONNOTEL [Concomitant]
     Indication: CROHN'S DISEASE
     Route: 048
  9. REGLAN [Concomitant]
     Indication: CROHN'S DISEASE
     Route: 048
  10. RANITIDINE HCL [Concomitant]
     Indication: GASTROOESOPHAGEAL REFLUX DISEASE
     Route: 048
  11. PENTASA [Concomitant]
     Indication: CROHN'S DISEASE
     Route: 048
  12. FLEXERIL [Concomitant]
     Indication: RHEUMATOID ARTHRITIS
     Route: 048
  13. ATIVAN [Concomitant]
     Indication: DEPRESSION
     Route: 048
  14. ZYRTEC [Concomitant]
     Indication: SEASONAL ALLERGY
     Route: 048
  15. ELAVIL [Concomitant]
     Indication: DEPRESSION
     Route: 048
  16. ASPIRIN [Concomitant]
     Indication: PROPHYLAXIS
     Route: 048
  17. FOLIC ACID [Concomitant]
     Indication: VITAMIN SUPPLEMENTATION
     Route: 048
  18. PROTONICS [Concomitant]
     Indication: SUPPLEMENTATION THERAPY
     Route: 048
  19. PREDNISONE [Concomitant]
     Indication: RHEUMATOID ARTHRITIS
     Route: 048
  20. ACTONEL [Concomitant]
     Indication: PROPHYLAXIS
     Route: 048
  21. TOPAMAX [Concomitant]
     Indication: TENSION HEADACHE
     Route: 048
  22. MOBIC [Concomitant]
     Indication: PAIN
     Route: 048
  23. ATENOLOL [Concomitant]
     Indication: HYPERTENSION
     Route: 048
  24. ZOCOR [Concomitant]
     Indication: BLOOD CHOLESTEROL INCREASED
     Route: 048
  25. REMICADE [Concomitant]
     Indication: CROHN'S DISEASE
     Dates: start: 20060101
  26. REMICADE [Concomitant]
     Indication: RHEUMATOID ARTHRITIS

REACTIONS (2)
  - INCORRECT DOSE ADMINISTERED [None]
  - INJECTION SITE EXTRAVASATION [None]
